FAERS Safety Report 4697499-2 (Version None)
Quarter: 2005Q2

REPORT INFORMATION
  Report Type: 
  Country: None (occurrence: None)
  Receive Date: 20050621
  Receipt Date: 20050607
  Transmission Date: 20051028
  Serious: Yes (Hospitalization)
  Sender: FDA-Public Use
  Company Number: USA030330724

PATIENT
  Age: 74 Year
  Sex: Female
  Weight: 63 kg

DRUGS (5)
  1. HUMALOG [Suspect]
     Indication: DIABETES MELLITUS
     Dosage: 50 U DAY
     Dates: start: 20030201
  2. HUMULIN N [Suspect]
     Indication: DIABETES MELLITUS
     Dates: start: 19940101, end: 20030201
  3. SYNTHROID [Concomitant]
  4. PLAVIX [Concomitant]
  5. ASPIRIN [Concomitant]

REACTIONS (7)
  - BACK PAIN [None]
  - BLOOD GLUCOSE FLUCTUATION [None]
  - BLOOD GLUCOSE INCREASED [None]
  - DRUG HYPERSENSITIVITY [None]
  - KIDNEY INFECTION [None]
  - METRORRHAGIA [None]
  - TREMOR [None]
